FAERS Safety Report 9468051 (Version 1)
Quarter: 2013Q3

REPORT INFORMATION
  Report Type: Spontaneous
  Country: US (occurrence: None)
  Receive Date: 20130819
  Receipt Date: 20130819
  Transmission Date: 20140515
  Serious: No
  Sender: FDA-Public Use
  Company Number: None

PATIENT
  Sex: 0

DRUGS (2)
  1. MEGESTROL ACETATE [Suspect]
     Dosage: STRENGTH:  40MG/ML, 20ML (800 MG
  2. MEGESTROL ACETATE [Suspect]
     Dosage: STRENGTH:  40MG/ML, 5ML (200MG)

REACTIONS (2)
  - Drug dispensing error [None]
  - Medication error [None]
